FAERS Safety Report 25132068 (Version 3)
Quarter: 2025Q4

REPORT INFORMATION
  Report Type: Report from Study
  Country: US (occurrence: US)
  Receive Date: 20250328
  Receipt Date: 20251223
  Transmission Date: 20260118
  Serious: No
  Sender: SANDOZ
  Company Number: US-SANDOZ-SDZ2024US098351

PATIENT
  Age: 8 Year
  Sex: Female

DRUGS (3)
  1. OMNITROPE [Suspect]
     Active Substance: SOMATROPIN
     Indication: Short stature
     Dosage: 1.1 MG, QD
     Dates: start: 20240213
  2. OMNITROPE [Suspect]
     Active Substance: SOMATROPIN
     Indication: Hypopituitarism
     Dosage: 10 MG, QD, E23.0 R62.52
  3. OMNITROPE [Suspect]
     Active Substance: SOMATROPIN
     Dosage: 1.3 MG, QD

REACTIONS (3)
  - Incorrect dose administered [Unknown]
  - Device breakage [Unknown]
  - Device delivery system issue [Unknown]

NARRATIVE: CASE EVENT DATE: 20241107
